FAERS Safety Report 5032920-1 (Version None)
Quarter: 2006Q2

REPORT INFORMATION
  Report Type: 
  Country: None (occurrence: None)
  Receive Date: 20060515
  Receipt Date: 20060404
  Transmission Date: 20061013
  Serious: No
  Sender: FDA-Public Use
  Company Number: S06-USA-00927-01

PATIENT
  Age: 87 Year
  Sex: Female

DRUGS (4)
  1. NAMENDA [Suspect]
     Indication: DEMENTIA
     Dosage: 10 MG BID PO
     Route: 048
     Dates: start: 20051101, end: 20060328
  2. NAMENDA [Suspect]
     Indication: DEMENTIA
     Dosage: 10 MG QD PO
     Route: 048
     Dates: start: 20060329
  3. ARICEPT [Concomitant]
  4. EFFEXOR (VENALFAXINE HYDROCHLORIDE) [Concomitant]

REACTIONS (2)
  - AGGRESSION [None]
  - FATIGUE [None]
